FAERS Safety Report 18427503 (Version 1)
Quarter: 2020Q4

REPORT INFORMATION
  Report Type: Spontaneous
  Country: US (occurrence: US)
  Receive Date: 20201026
  Receipt Date: 20201026
  Transmission Date: 20210114
  Serious: No
  Sender: FDA-Public Use
  Company Number: US-ABBVIE-19K-163-3000743-00

PATIENT
  Sex: Female

DRUGS (2)
  1. LUPRON [Suspect]
     Active Substance: LEUPROLIDE ACETATE
     Indication: UTERINE LEIOMYOMA
     Route: 050
  2. ORILISSA [Suspect]
     Active Substance: ELAGOLIX SODIUM
     Indication: PRODUCT USED FOR UNKNOWN INDICATION
     Route: 048

REACTIONS (9)
  - Pain in extremity [Unknown]
  - Dyspareunia [Unknown]
  - Pelvic pain [Unknown]
  - Anxiety [Unknown]
  - Back pain [Unknown]
  - Pollakiuria [Unknown]
  - Sexual dysfunction [Unknown]
  - Pelvic discomfort [Unknown]
  - Pain [Unknown]
